FAERS Safety Report 7020378-2 (Version None)
Quarter: 2010Q3

REPORT INFORMATION
  Report Type: 
  Country: None (occurrence: None)
  Receive Date: 20100929
  Receipt Date: 20100924
  Transmission Date: 20110219
  Serious: Yes (Other)
  Sender: FDA-Public Use
  Company Number: NZ-WYE-G06669110

PATIENT
  Age: 73 Year
  Sex: Female
  Weight: 53 kg

DRUGS (10)
  1. EFFEXOR XR [Suspect]
     Indication: HYPERVIGILANCE
     Dosage: 37.5MG
     Route: 048
     Dates: start: 20100526
  2. EFFEXOR XR [Suspect]
     Indication: DEPRESSION
     Dosage: 75MG
     Route: 048
     Dates: start: 20100616
  3. EFFEXOR XR [Suspect]
     Dosage: WEANING DOSE
     Route: 048
     Dates: start: 20100101
  4. RANITIDINE [Concomitant]
     Indication: GASTROOESOPHAGITIS
     Dosage: 200MG DAILY
     Route: 048
  5. LANSOPRAZOLE [Concomitant]
     Indication: GASTROOESOPHAGITIS
     Route: 048
  6. COLECALCIFEROL [Concomitant]
     Indication: VITAMIN D DEFICIENCY
     Dosage: 1.25MG WEEKLY
     Route: 048
  7. OVESTIN [Concomitant]
     Indication: ATROPHIC VULVOVAGINITIS
     Dosage: CREAM, TOPICALLY
     Route: 067
  8. MOTILIUM [Concomitant]
  9. ATIVAN [Concomitant]
     Indication: ANXIETY
     Dosage: 1-2MG
     Route: 048
  10. ATIVAN [Concomitant]
     Indication: SLEEP DISORDER

REACTIONS (4)
  - EYE IRRITATION [None]
  - EYE PAIN [None]
  - INTRAOCULAR PRESSURE INCREASED [None]
  - MIDDLE INSOMNIA [None]
